FAERS Safety Report 14327514 (Version 3)
Quarter: 2024Q2

REPORT INFORMATION
  Report Type: Report from Study
  Country: US (occurrence: US)
  Receive Date: 20171227
  Receipt Date: 20240610
  Transmission Date: 20240716
  Serious: Yes (Hospitalization, Other)
  Sender: FDA-Public Use
  Company Number: US-UCBSA-2017052008

PATIENT
  Age: 0 Year
  Sex: Female
  Weight: 3 kg

DRUGS (14)
  1. CERTOLIZUMAB PEGOL [Suspect]
     Active Substance: CERTOLIZUMAB PEGOL
     Indication: Ankylosing spondylitis
     Dosage: 400 MG, MONTHLY (QM)
     Route: 064
     Dates: start: 20161026, end: 20170719
  2. CERTOLIZUMAB PEGOL [Suspect]
     Active Substance: CERTOLIZUMAB PEGOL
     Indication: Crohn^s disease
  3. FOLIC ACID [Concomitant]
     Active Substance: FOLIC ACID
     Indication: Product used for unknown indication
     Dosage: 5 MG, ONCE DAILY (QD)
     Route: 064
     Dates: start: 20161006, end: 20170719
  4. PRENATAL VITAMINS [ASCORBIC ACID;BIOTIN;MINERALS NOS;NICOTINIC ACID;RE [Concomitant]
     Indication: Product used for unknown indication
     Dosage: 1 DF, ONCE DAILY (QD)
     Route: 064
     Dates: start: 20161010, end: 20170719
  5. AMINOSALICYLIC ACID [Concomitant]
     Active Substance: AMINOSALICYLIC ACID
     Indication: Crohn^s disease
     Dosage: 4000 MG, EV 4 WEEKS
     Route: 064
     Dates: start: 20161006, end: 20170719
  6. SUMATRIPTAN SUCCINATE [Concomitant]
     Active Substance: SUMATRIPTAN SUCCINATE
     Indication: Migraine
     Dosage: 1 DF, 7 TOTAL
     Route: 064
     Dates: start: 20161006, end: 20170719
  7. SYNTHROID [Concomitant]
     Active Substance: LEVOTHYROXINE SODIUM
     Indication: Hypothyroidism
     Dosage: 0.05 MG, ONCE DAILY (QD)
     Route: 064
     Dates: start: 20161026, end: 20161103
  8. SYNTHROID [Concomitant]
     Active Substance: LEVOTHYROXINE SODIUM
     Dosage: 0.08 MILLIGRAM, ONCE DAILY (QD)
     Route: 064
     Dates: start: 20161114, end: 20161130
  9. SYNTHROID [Concomitant]
     Active Substance: LEVOTHYROXINE SODIUM
     Dosage: 0.1 MILLIGRAM, ONCE DAILY (QD)
     Route: 064
     Dates: start: 20161201, end: 20161228
  10. SYNTHROID [Concomitant]
     Active Substance: LEVOTHYROXINE SODIUM
     Dosage: 0.13 MG, ONCE DAILY (QD)
     Route: 064
     Dates: start: 20161229, end: 20170719
  11. HYDROXOCOBALAMIN [Concomitant]
     Active Substance: HYDROXOCOBALAMIN
     Indication: Product used for unknown indication
     Dosage: 1 DF, ONCE DAILY (QD)
     Route: 064
     Dates: start: 20170105, end: 20170719
  12. VITAMIN B6 [Concomitant]
     Active Substance: PYRIDOXINE HYDROCHLORIDE
     Indication: Product used for unknown indication
     Dosage: 1 DF, ONCE DAILY (QD)
     Route: 064
     Dates: start: 20170105, end: 20170719
  13. CHOLECALCIFEROL [Concomitant]
     Active Substance: CHOLECALCIFEROL
     Indication: Product used for unknown indication
     Dosage: 2000 IU, ONCE DAILY (QD)
     Route: 064
     Dates: start: 20170105, end: 20170719
  14. DIETARY SUPPLEMENT [Concomitant]
     Active Substance: DIETARY SUPPLEMENT
     Indication: Product used for unknown indication
     Dosage: 5 MILLILITER, WEEKLY (QW) (5 ML, 4.5 WEEK)
     Route: 064
     Dates: start: 20161028, end: 20170719

REACTIONS (8)
  - Viral rash [Unknown]
  - Pyrexia [Recovered/Resolved]
  - Abdominal pain upper [Recovered/Resolved]
  - Crohn^s disease [Recovered/Resolved]
  - Gastrointestinal inflammation [Recovered/Resolved]
  - C-reactive protein increased [Recovered/Resolved]
  - Maternal exposure before pregnancy [Unknown]
  - Maternal exposure during pregnancy [Unknown]

NARRATIVE: CASE EVENT DATE: 20161026
